FAERS Safety Report 6138574-5 (Version None)
Quarter: 2009Q1

REPORT INFORMATION
  Report Type: 
  Country: None (occurrence: None)
  Receive Date: 20090327
  Receipt Date: 20090309
  Transmission Date: 20090719
  Serious: Yes (Hospitalization)
  Sender: FDA-Public Use
  Company Number: 1000005460

PATIENT
  Age: 64 Year
  Sex: Female

DRUGS (13)
  1. MEMANTINE HCL [Suspect]
     Dosage: SEE IMAGE
     Route: 048
     Dates: start: 20081115, end: 20081119
  2. MEMANTINE HCL [Suspect]
     Dosage: SEE IMAGE
     Route: 048
     Dates: start: 20081120, end: 20081125
  3. MEMANTINE HCL [Suspect]
     Dosage: SEE IMAGE
     Route: 048
     Dates: start: 20081126, end: 20081126
  4. SEROQUEL [Suspect]
     Dosage: 125 MG1 IN 1 D, ORAL
     Route: 048
     Dates: start: 20081127, end: 20081127
  5. SEROQUEL [Suspect]
     Dosage: 25 MG (25 MG, 1 IN 1 D), ORAL
     Route: 048
     Dates: start: 20081128
  6. SEROQUEL [Suspect]
     Dosage: SEE IMAGE
     Route: 048
     Dates: start: 20081103, end: 20081112
  7. SEROQUEL [Suspect]
     Dosage: SEE IMAGE
     Route: 048
     Dates: start: 20081113, end: 20081121
  8. SEROQUEL [Suspect]
     Dosage: SEE IMAGE
     Route: 048
     Dates: start: 20081122, end: 20081126
  9. EUNERPAN [Suspect]
     Dosage: 62.5 MG (62.5 MG, 1 IN 1 D), ORAL
     Route: 048
     Dates: start: 20081102, end: 20081106
  10. EUNERPAN [Suspect]
     Dosage: 100 MG (100 MG, 1 IN 1 D), ORAL, 62.5 MG (62.5 MG, 1 IN 1 D), ORAL
     Route: 048
     Dates: start: 20081107, end: 20081112
  11. EUNERPAN [Suspect]
     Dosage: 100 MG (100 MG, 1 IN 1 D), ORAL, 62.5 MG (62.5 MG, 1 IN 1 D), ORAL
     Route: 048
     Dates: start: 20081113, end: 20081130
  12. ASPIRIN [Concomitant]
  13. ATACAND [Concomitant]

REACTIONS (1)
  - PLEUROTHOTONUS [None]
